FAERS Safety Report 5633219-2 (Version None)
Quarter: 2008Q1

REPORT INFORMATION
  Report Type: 
  Country: None (occurrence: None)
  Receive Date: 20080221
  Receipt Date: 20070125
  Transmission Date: 20080703
  Serious: No
  Sender: FDA-Public Use
  Company Number: US-BAYER-200710264BWH

PATIENT

DRUGS (1)
  1. NIMOTOP [Suspect]
     Indication: BIPOLAR DISORDER
     Dosage: TOTAL DAILY DOSE: 60 MG  UNIT DOSE: 30 MG
     Route: 048

REACTIONS (1)
  - PHARMACEUTICAL PRODUCT COMPLAINT [None]
